FAERS Safety Report 8984252 (Version 3)
Quarter: 2014Q2

REPORT INFORMATION
  Report Type: Report from Study
  Country: CA (occurrence: CA)
  Receive Date: 20121226
  Receipt Date: 20140523
  Transmission Date: 20141212
  Serious: Yes (Other)
  Sender: FDA-Public Use
  Company Number: CA-JNJFOC-20121209584

PATIENT
  Age: 34 Year
  Sex: Female
  Weight: 88 kg

DRUGS (9)
  1. REMICADE [Suspect]
     Indication: CROHN^S DISEASE
     Route: 042
     Dates: start: 20121214
  2. REMICADE [Suspect]
     Indication: CROHN^S DISEASE
     Route: 042
     Dates: start: 20100817, end: 20130129
  3. IMURAN [Concomitant]
     Route: 065
  4. BIRTH CONTROL PILLS [Concomitant]
     Route: 065
  5. CALCIUM WITH VITAMIN D [Concomitant]
     Route: 065
  6. IRON [Concomitant]
     Route: 065
  7. TRAMACET [Concomitant]
     Route: 065
  8. BENADRYL [Concomitant]
     Indication: PREMEDICATION
     Route: 042
     Dates: start: 20121214
  9. TYLENOL [Concomitant]
     Indication: PREMEDICATION
     Route: 048
     Dates: start: 20121214

REACTIONS (3)
  - Vision blurred [Not Recovered/Not Resolved]
  - Eye swelling [Not Recovered/Not Resolved]
  - Infusion related reaction [Not Recovered/Not Resolved]
